FAERS Safety Report 9947003 (Version 1)
Quarter: 2014Q1

REPORT INFORMATION
  Report Type: Report from Study
  Country: US (occurrence: US)
  Receive Date: 20140303
  Receipt Date: 20140303
  Transmission Date: 20141002
  Serious: No
  Sender: FDA-Public Use
  Company Number: US-ABBVIE-13P-163-1062074-00

PATIENT
  Age: 55 Year
  Sex: Female

DRUGS (15)
  1. HUMIRA [Suspect]
     Indication: RHEUMATOID ARTHRITIS
     Dates: start: 201301, end: 201302
  2. HUMIRA [Suspect]
     Dates: start: 201302
  3. LISINOPRIL [Concomitant]
     Indication: CARDIAC DISORDER
  4. SPIRONOLACTONE [Concomitant]
     Indication: DIURETIC THERAPY
  5. FUROSEMIDE [Concomitant]
     Indication: DIURETIC THERAPY
  6. ASA [Concomitant]
     Indication: CARDIAC DISORDER
  7. DIGOXIN [Concomitant]
     Indication: CARDIAC DISORDER
  8. ATORVASTATIN [Concomitant]
     Indication: BLOOD CHOLESTEROL ABNORMAL
  9. METOPROLOL XR [Concomitant]
     Indication: TACHYCARDIA
  10. METFORMIN [Concomitant]
     Indication: DIABETES MELLITUS
  11. GLIPIZIDE [Concomitant]
     Indication: DIABETES MELLITUS
  12. CELLCEPT [Concomitant]
     Indication: ARTHRITIS
  13. REVATIO [Concomitant]
     Indication: CARDIAC DISORDER
  14. NORCO [Concomitant]
     Indication: PAIN
     Dosage: 10MG/325MG TID PRN
  15. FLEXERIL [Concomitant]
     Indication: MUSCLE SPASMS
     Dosage: AT BEDTIME

REACTIONS (1)
  - Drug effect incomplete [Recovering/Resolving]
